FAERS Safety Report 5655063-2 (Version None)
Quarter: 2008Q1

REPORT INFORMATION
  Report Type: 
  Country: None (occurrence: None)
  Receive Date: 20080307
  Receipt Date: 20071106
  Transmission Date: 20080703
  Serious: No
  Sender: FDA-Public Use
  Company Number: A0694028A

PATIENT
  Age: 40 Year
  Sex: Female

DRUGS (1)
  1. REQUIP [Suspect]
     Indication: DRUG USE FOR UNKNOWN INDICATION
     Dosage: 2MG UNKNOWN
     Route: 048

REACTIONS (5)
  - INSOMNIA [None]
  - MOBILITY DECREASED [None]
  - QUALITY OF LIFE DECREASED [None]
  - REBOUND EFFECT [None]
  - THERAPEUTIC RESPONSE DECREASED [None]
